FAERS Safety Report 6221938-9 (Version None)
Quarter: 2009Q2

REPORT INFORMATION
  Report Type: 
  Country: None (occurrence: None)
  Receive Date: 20090611
  Receipt Date: 20090604
  Transmission Date: 20091009
  Serious: Yes (Other)
  Sender: FDA-Public Use
  Company Number: GB-TEVA-197303ISR

PATIENT
  Sex: Female

DRUGS (2)
  1. PAROXETINE HCL [Suspect]
  2. METHYLTHIONINIUM CHLORIDE [Suspect]
     Indication: PARATHYROIDECTOMY

REACTIONS (2)
  - DRUG INTERACTION [None]
  - SEROTONIN SYNDROME [None]
